FAERS Safety Report 18742156 (Version 1)
Quarter: 2021Q1

REPORT INFORMATION
  Report Type: Spontaneous
  Country: US (occurrence: US)
  Receive Date: 20210114
  Receipt Date: 20210114
  Transmission Date: 20210419
  Serious: No
  Sender: FDA-Public Use
  Company Number: US-TEVA-2019-US-999929

PATIENT

DRUGS (1)
  1. TEVA NORTRIPTYLINE HYDROCHLORIDE [Suspect]
     Active Substance: NORTRIPTYLINE HYDROCHLORIDE
     Dosage: 100 MILLIGRAM DAILY; 2X50 MG OF TEVA NORTRIPTYLINE IN THE MORNING
     Route: 065

REACTIONS (3)
  - Foreign body in gastrointestinal tract [Unknown]
  - Oesophageal discomfort [Unknown]
  - Wrong technique in product usage process [Unknown]
